FAERS Safety Report 18078403 (Version 2)
Quarter: 2020Q3

REPORT INFORMATION
  Report Type: Spontaneous
  Country: US (occurrence: US)
  Receive Date: 20200728
  Receipt Date: 20200914
  Transmission Date: 20201103
  Serious: No
  Sender: FDA-Public Use
  Company Number: US-SA-2020SA189556

PATIENT

DRUGS (2)
  1. DUPIXENT [Suspect]
     Active Substance: DUPILUMAB
     Dosage: 300 MG, FREQUENCY: OTHER
     Route: 058
  2. DUPIXENT [Suspect]
     Active Substance: DUPILUMAB
     Dosage: 150 MG; FREQUENCY: OTHER
     Route: 058
     Dates: start: 202009

REACTIONS (2)
  - Condition aggravated [Unknown]
  - Off label use [Unknown]

NARRATIVE: CASE EVENT DATE: 20200630
